FAERS Safety Report 8448472-X (Version None)
Quarter: 2012Q2

REPORT INFORMATION
  Report Type: 
  Country: None (occurrence: None)
  Receive Date: 20120619
  Receipt Date: 20120605
  Transmission Date: 20120825
  Serious: Yes (Hospitalization)
  Sender: FDA-Public Use
  Company Number: JP-ROCHE-1076996

PATIENT
  Sex: Female

DRUGS (19)
  1. GLIMEPIRIDE [Suspect]
     Indication: DIABETES MELLITUS
     Route: 048
  2. ACTEMRA [Suspect]
     Route: 041
     Dates: start: 20100506
  3. REBAMIPIDE [Suspect]
     Indication: PRODUCT USED FOR UNKNOWN INDICATION
     Route: 048
  4. PAMILCON [Concomitant]
     Indication: DIABETES MELLITUS
     Route: 048
  5. ACARBOSE [Suspect]
     Indication: PRODUCT USED FOR UNKNOWN INDICATION
     Route: 048
  6. RABEPRAZOLE SODIUM [Suspect]
     Indication: GASTROOESOPHAGEAL REFLUX DISEASE
     Route: 048
  7. PREDNISONE [Suspect]
     Route: 048
  8. INCREMIN (JAPAN) [Concomitant]
     Route: 048
  9. AZOSEMIDE [Suspect]
     Indication: PRODUCT USED FOR UNKNOWN INDICATION
     Route: 048
  10. TRICHLORMETHIAZIDE [Concomitant]
     Indication: HYPERTENSION
     Route: 048
  11. THYROID TAB [Suspect]
     Indication: HYPOTHYROIDISM
     Route: 048
  12. ASPIRIN [Suspect]
     Indication: PROPHYLAXIS
     Route: 048
  13. NORVASC [Concomitant]
     Indication: ANGINA PECTORIS
     Route: 048
  14. ACTEMRA [Suspect]
     Indication: RHEUMATOID ARTHRITIS
     Route: 041
     Dates: start: 20090210, end: 20100309
  15. CLOPIDOGREL BISULFATE [Suspect]
     Indication: PROPHYLAXIS
     Route: 048
  16. PREDNISONE [Suspect]
     Indication: RHEUMATOID ARTHRITIS
     Route: 048
     Dates: start: 20090101, end: 20090406
  17. PREDNISOLONE [Suspect]
     Route: 048
     Dates: start: 20090407
  18. CELECOXIB [Suspect]
     Indication: PRODUCT USED FOR UNKNOWN INDICATION
     Route: 048
  19. NABOAL [Concomitant]
     Indication: RHEUMATOID ARTHRITIS
     Route: 048

REACTIONS (2)
  - PYREXIA [None]
  - PAIN [None]
